FAERS Safety Report 18952669 (Version 1)
Quarter: 2021Q1

REPORT INFORMATION
  Report Type: Spontaneous
  Country: US (occurrence: US)
  Receive Date: 20210226
  Receipt Date: 20210226
  Transmission Date: 20210420
  Serious: No
  Sender: FDA-Public Use
  Company Number: None

PATIENT
  Age: 68 Year
  Sex: Male

DRUGS (1)
  1. SUTENT [Suspect]
     Active Substance: SUNITINIB MALATE
     Indication: RENAL CELL CARCINOMA
     Dosage: ?          OTHER FREQUENCY:DIALYX4 WEEKS;?
     Route: 048
     Dates: start: 20201210

REACTIONS (4)
  - Ageusia [None]
  - Hypophagia [None]
  - Weight decreased [None]
  - Toothache [None]

NARRATIVE: CASE EVENT DATE: 20201216
